FAERS Safety Report 9620996 (Version 1)
Quarter: 2013Q4

REPORT INFORMATION
  Report Type: Spontaneous
  Country: US (occurrence: US)
  Receive Date: 20131015
  Receipt Date: 20131015
  Transmission Date: 20140711
  Serious: No
  Sender: FDA-Public Use
  Company Number: US-UPSHER-SMITH LABORATORIES, INC.-13000158

PATIENT
  Sex: Male

DRUGS (3)
  1. BACLOFEN [Suspect]
     Indication: ANXIETY
     Dosage: 10 MG, TID
     Route: 048
     Dates: start: 2012, end: 2012
  2. BACLOFEN [Suspect]
     Dosage: 20 MG, TID
     Route: 048
     Dates: start: 2012, end: 2012
  3. BACLOFEN [Suspect]
     Dosage: 10 MG, TID
     Route: 048
     Dates: start: 2012

REACTIONS (1)
  - Headache [Recovered/Resolved]
